FAERS Safety Report 8588697-6 (Version None)
Quarter: 2012Q3

REPORT INFORMATION
  Report Type: 
  Country: None (occurrence: None)
  Receive Date: 20120813
  Receipt Date: 20120807
  Transmission Date: 20120928
  Serious: Yes (Other)
  Sender: FDA-Public Use
  Company Number: PHHY2009CA26419

PATIENT
  Sex: Male

DRUGS (4)
  1. ZOLEDRONOC ACID [Suspect]
     Route: 042
     Dates: start: 20100908
  2. ZOLEDRONOC ACID [Suspect]
     Route: 042
     Dates: start: 20111013
  3. ZOLEDRONOC ACID [Suspect]
     Indication: OSTEOPOROSIS
     Dosage: 5 MG/100 ML
     Route: 042
     Dates: start: 20080722
  4. ZOLEDRONOC ACID [Suspect]
     Dosage: 5 MG/100 ML
     Route: 042
     Dates: start: 20090728

REACTIONS (10)
  - FEELING HOT [None]
  - CHILLS [None]
  - ASTHENIA [None]
  - TREMOR [None]
  - PROSTATE CANCER [None]
  - MUSCULOSKELETAL STIFFNESS [None]
  - FEELING COLD [None]
  - BONE PAIN [None]
  - HEADACHE [None]
  - HYPERHIDROSIS [None]
